FAERS Safety Report 8553822-X (Version None)
Quarter: 2012Q3

REPORT INFORMATION
  Report Type: 
  Country: None (occurrence: None)
  Receive Date: 20120731
  Receipt Date: 20120723
  Transmission Date: 20120928
  Serious: Yes (Hospitalization)
  Sender: FDA-Public Use
  Company Number: US-009507513-1207USA010917

PATIENT

DRUGS (2)
  1. BONIVA [Suspect]
  2. FOSAMAX [Suspect]
     Indication: OSTEOPOROSIS
     Dosage: UNK
     Route: 048

REACTIONS (4)
  - MUSCULOSKELETAL PAIN [None]
  - GAIT DISTURBANCE [None]
  - FEMUR FRACTURE [None]
  - ULCER [None]
